FAERS Safety Report 24742031 (Version 1)
Quarter: 2024Q4

REPORT INFORMATION
  Report Type: Spontaneous
  Country: US (occurrence: None)
  Receive Date: 20241213
  Receipt Date: 20241213
  Transmission Date: 20250114
  Serious: Yes (Life-Threatening, Disabling, Other)
  Sender: Public
  Company Number: None

PATIENT
  Age: 44 Year
  Sex: Female
  Weight: 125 kg

DRUGS (1)
  1. SEMAGLUTIDE [Suspect]
     Active Substance: SEMAGLUTIDE
     Indication: Weight decreased
     Dosage: OTHER QUANTITY : 5 INJECTION(S)?OTHER FREQUENCY : ONCE A WEEK?
     Route: 058
     Dates: start: 20240405, end: 20241114

REACTIONS (13)
  - Cardiac arrest [None]
  - Seizure [None]
  - Emotional distress [None]
  - Visual impairment [None]
  - Asthenia [None]
  - Feeling abnormal [None]
  - Balance disorder [None]
  - Headache [None]
  - Disturbance in attention [None]
  - Dysphemia [None]
  - Unresponsive to stimuli [None]
  - Dry mouth [None]
  - Cyanosis [None]

NARRATIVE: CASE EVENT DATE: 20241116
